FAERS Safety Report 4561171-X (Version None)
Quarter: 2005Q1

REPORT INFORMATION
  Report Type: 
  Country: None (occurrence: None)
  Receive Date: 20050126
  Receipt Date: 20041021
  Transmission Date: 20050727
  Serious: Yes (Other)
  Sender: FDA-Public Use
  Company Number: 200420577GDDC

PATIENT
  Age: 13 Year
  Sex: Male
  Weight: 62 kg

DRUGS (3)
  1. LANTUS [Suspect]
     Indication: DIABETES MELLITUS
     Dosage: DOSE UNIT: UNITS
     Route: 058
     Dates: start: 20040817, end: 20040909
  2. HUMAN ACTRAPID [Concomitant]
     Dosage: DOSE UNIT: UNITS
     Route: 058
  3. MIXTARD HUMAN 70/30 [Concomitant]
     Dosage: DOSE UNIT: UNITS
     Route: 058

REACTIONS (2)
  - ALOPECIA [None]
  - EMOTIONAL DISTRESS [None]
